FAERS Safety Report 8042704-8 (Version None)
Quarter: 2012Q1

REPORT INFORMATION
  Report Type: 
  Country: None (occurrence: None)
  Receive Date: 20120112
  Receipt Date: 20120103
  Transmission Date: 20120608
  Serious: Yes (Life-Threatening, Hospitalization, Disabling, Other)
  Sender: FDA-Public Use
  Company Number: US-ACTELION-A-NJ2011-56624

PATIENT

DRUGS (2)
  1. OXYGEN [Concomitant]
  2. TRACLEER [Suspect]
     Indication: PULMONARY ARTERIAL HYPERTENSION
     Dosage: UNK
     Route: 048
     Dates: start: 20091016

REACTIONS (4)
  - LUNG TRANSPLANT [None]
  - CEREBROVASCULAR ACCIDENT [None]
  - VIITH NERVE PARALYSIS [None]
  - HEMIPARESIS [None]
